FAERS Safety Report 24811198 (Version 1)
Quarter: 2025Q1

REPORT INFORMATION
  Report Type: Spontaneous
  Country: US (occurrence: US)
  Receive Date: 20250106
  Receipt Date: 20250106
  Transmission Date: 20250409
  Serious: No
  Sender: ROCHE
  Company Number: US-ROCHE-10000169902

PATIENT
  Age: 63 Year
  Sex: Male

DRUGS (16)
  1. BEVACIZUMAB [Suspect]
     Active Substance: BEVACIZUMAB
     Indication: Iris neovascularisation
     Route: 050
  2. RITUXIMAB [Concomitant]
     Active Substance: RITUXIMAB
     Route: 050
  3. CARMUSTINE [Concomitant]
     Active Substance: CARMUSTINE
  4. ERYTHROMYCIN [Concomitant]
     Active Substance: ERYTHROMYCIN
     Route: 061
  5. PREDNISOLONE ACETATE [Concomitant]
     Active Substance: PREDNISOLONE ACETATE
  6. TOBRAMYCIN [Concomitant]
     Active Substance: TOBRAMYCIN
     Route: 061
  7. CYCLOPENTOLATE [Concomitant]
     Active Substance: CYCLOPENTOLATE
  8. PROPARACAINE [Concomitant]
     Active Substance: PROPARACAINE
  9. TETRACAINE [Concomitant]
     Active Substance: TETRACAINE
  10. PREDNISONE [Concomitant]
     Active Substance: PREDNISONE
     Route: 048
  11. PREDNISONE [Concomitant]
     Active Substance: PREDNISONE
     Route: 031
  12. BRIMONIDINE [Concomitant]
     Active Substance: BRIMONIDINE TARTRATE
     Dosage: OPHTHALMIC SOLUTION
  13. TRAVOPROST [Concomitant]
     Active Substance: TRAVOPROST
  14. BRINZOLAMIDE [Concomitant]
     Active Substance: BRINZOLAMIDE
  15. BENDAMUSTINE [Concomitant]
     Active Substance: BENDAMUSTINE
  16. CYTARABINE [Concomitant]
     Active Substance: CYTARABINE

REACTIONS (3)
  - Off label use [Unknown]
  - Off label use [Unknown]
  - No adverse event [Unknown]
